FAERS Safety Report 19616346 (Version 1)
Quarter: 2021Q3

REPORT INFORMATION
  Report Type: Spontaneous
  Country: US (occurrence: US)
  Receive Date: 20210727
  Receipt Date: 20210727
  Transmission Date: 20211014
  Serious: Yes (Hospitalization)
  Sender: FDA-Public Use
  Company Number: US-ABBVIE-21K-163-3871042-00

PATIENT
  Sex: Female
  Weight: 54.03 kg

DRUGS (16)
  1. SYNTHROID [Suspect]
     Active Substance: LEVOTHYROXINE SODIUM
     Indication: HYPOTHYROIDISM
     Route: 048
     Dates: start: 201102, end: 201503
  2. SYNTHROID [Suspect]
     Active Substance: LEVOTHYROXINE SODIUM
     Route: 048
     Dates: start: 20210222, end: 202104
  3. LEVOTHYROXINE. [Suspect]
     Active Substance: LEVOTHYROXINE
     Indication: HYPOTHYROIDISM
     Dosage: LANNETT MANUFACTURER
     Route: 048
     Dates: start: 201503, end: 201511
  4. LEVOTHYROXINE. [Suspect]
     Active Substance: LEVOTHYROXINE
     Dosage: LANNETT MANUFACTURER
     Route: 048
     Dates: start: 201807, end: 201812
  5. LEVOTHYROXINE. [Suspect]
     Active Substance: LEVOTHYROXINE
     Dosage: AMNEAL MANUFACTURER
     Route: 048
     Dates: start: 201904, end: 201906
  6. VITAMIN B12 [Concomitant]
     Active Substance: CYANOCOBALAMIN
     Indication: VITAMIN B12 DEFICIENCY
  7. SYNTHROID [Suspect]
     Active Substance: LEVOTHYROXINE SODIUM
     Dosage: ONE EXTRA EACH SUNDAYS
     Route: 048
     Dates: start: 202104
  8. LEVOTHYROXINE. [Suspect]
     Active Substance: LEVOTHYROXINE
     Dosage: LANNETT MANUFACTURER
     Route: 048
     Dates: start: 201710, end: 201801
  9. LEVOTHYROXINE. [Suspect]
     Active Substance: LEVOTHYROXINE
     Dosage: AMNEAL MANUFACTURER
     Route: 048
     Dates: start: 201903, end: 201904
  10. SYNTHROID [Suspect]
     Active Substance: LEVOTHYROXINE SODIUM
     Route: 048
     Dates: start: 202101, end: 20210222
  11. LEVOTHYROXINE. [Suspect]
     Active Substance: LEVOTHYROXINE
     Dosage: LANNETT MANUFACTURER
     Route: 048
     Dates: start: 201511, end: 201610
  12. LEVOTHYROXINE. [Suspect]
     Active Substance: LEVOTHYROXINE
     Dosage: LANNETT MANUFACTURER
     Route: 048
     Dates: start: 201610, end: 201707
  13. LEVOTHYROXINE. [Suspect]
     Active Substance: LEVOTHYROXINE
     Dosage: LANNETT MANUFACTURER
     Route: 048
     Dates: start: 201801, end: 201807
  14. LEVOTHYROXINE. [Suspect]
     Active Substance: LEVOTHYROXINE
     Dosage: AMNEAL MANUFACTURER
     Route: 048
     Dates: start: 201812, end: 201903
  15. LEVOTHYROXINE. [Suspect]
     Active Substance: LEVOTHYROXINE
     Dosage: LANNETT MANUFACTURER
     Route: 048
     Dates: start: 201707, end: 201710
  16. VITAMIN D [Concomitant]
     Active Substance: VITAMIN D NOS
     Indication: VITAMIN D DEFICIENCY

REACTIONS (8)
  - Tremor [Not Recovered/Not Resolved]
  - Blood test abnormal [Unknown]
  - Anxiety [Recovering/Resolving]
  - Blood thyroid stimulating hormone abnormal [Unknown]
  - Palpitations [Not Recovered/Not Resolved]
  - Alopecia [Not Recovered/Not Resolved]
  - Maternal exposure during pregnancy [Unknown]
  - Nervousness [Not Recovered/Not Resolved]

NARRATIVE: CASE EVENT DATE: 2019
